FAERS Safety Report 7901593-X (Version None)
Quarter: 2011Q4

REPORT INFORMATION
  Report Type: 
  Country: None (occurrence: None)
  Receive Date: 20111104
  Receipt Date: 20111024
  Transmission Date: 20120403
  Serious: Yes (Other)
  Sender: FDA-Public Use
  Company Number: 1088797

PATIENT
  Age: 75 Year
  Sex: Female

DRUGS (3)
  1. VANCOMYCIN HYCHLORIDE [Concomitant]
  2. GENTAMICIN SULFATE [Suspect]
     Indication: ENDOPHTHALMITIS
     Dosage: INTRAOCULAR
     Route: 031
  3. CEFTAZIDIME [Concomitant]

REACTIONS (1)
  - RETINAL INFARCTION [None]
